FAERS Safety Report 7173173 (Version 5)
Quarter: 2013Q1

REPORT INFORMATION
  Report Type: Spontaneous
  Country: US (occurrence: US)
  Receive Date: 20091111
  Receipt Date: 20130308
  Transmission Date: 20140127
  Serious: Yes (Hospitalization)
  Sender: FDA-Public Use
  Company Number: US-BIOGENIDEC-2009BI010153

PATIENT
  Age: 52 Year
  Sex: Female

DRUGS (9)
  1. TYSABRI [Suspect]
     Indication: MULTIPLE SCLEROSIS
     Route: 042
     Dates: start: 20071119
  2. TYSABRI [Suspect]
     Indication: MULTIPLE SCLEROSIS
     Route: 042
     Dates: start: 20071119
  3. CALCIUM [Concomitant]
  4. PREMARIN [Concomitant]
  5. VITAMIN D [Concomitant]
  6. ADVAIR [Concomitant]
  7. NEURONTIN [Concomitant]
  8. SINGULAIR [Concomitant]
  9. MAGNESIUM [Concomitant]

REACTIONS (5)
  - Anaphylactic reaction [Recovered/Resolved]
  - Hypersensitivity [Recovered/Resolved]
  - Anaphylactic shock [Recovered/Resolved]
  - Formication [Recovered/Resolved]
  - Lip swelling [Recovered/Resolved]
